FAERS Safety Report 10584495 (Version 1)
Quarter: 2014Q4

REPORT INFORMATION
  Report Type: Spontaneous
  Country: JP (occurrence: None)
  Receive Date: 20141112
  Receipt Date: 20141112
  Transmission Date: 20150529
  Serious: Yes (Hospitalization, Other)
  Sender: FDA-Public Use
  Company Number: 2014-003232

PATIENT
  Age: 74 Year
  Sex: Female

DRUGS (8)
  1. JZOLOFT (SERTRALINE HYDROCHLORIDE) [Concomitant]
  2. LANSOPRAZOLE. [Concomitant]
     Active Substance: LANSOPRAZOLE
  3. REMERON [Concomitant]
     Active Substance: MIRTAZAPINE
  4. RIVOTRIL [Concomitant]
     Active Substance: CLONAZEPAM
  5. QUETIAPINE [Concomitant]
     Active Substance: QUETIAPINE
  6. ROHYPNOL (FLUNITRAZEPAM) [Concomitant]
     Active Substance: FLUNITRAZEPAM
  7. ACTONEL [Suspect]
     Active Substance: RISEDRONATE SODIUM
     Indication: OSTEOPOROSIS
     Dosage: 75 MG ONE DOSE ONLY, ORAL
     Route: 048
     Dates: start: 20140822, end: 20140822
  8. MAGLAX (MAGNESIUM OXIDE) [Concomitant]
     Active Substance: MAGNESIUM OXIDE

REACTIONS (11)
  - Depression [None]
  - Influenza like illness [None]
  - Pyrexia [None]
  - Acute phase reaction [None]
  - Arthralgia [None]
  - Suicidal ideation [None]
  - Chills [None]
  - Irritability [None]
  - Gastrointestinal disorder [None]
  - Abdominal discomfort [None]
  - Insomnia [None]

NARRATIVE: CASE EVENT DATE: 20140822
